FAERS Safety Report 8964683 (Version 1)
Quarter: 2012Q4

REPORT INFORMATION
  Report Type: 
  Country: US (occurrence: US)
  Receive Date: 20121213
  Receipt Date: 20121213
  Transmission Date: 20130627
  Serious: No
  Sender: FDA-Public Use
  Company Number: US-ASTRAZENECA-2012SE90635

PATIENT
  Age: 85 Year
  Sex: Female
  Weight: 46.3 kg

DRUGS (4)
  1. CRESTOR [Suspect]
     Indication: BLOOD CHOLESTEROL INCREASED
     Route: 048
  2. ARMOUR THYROID [Concomitant]
     Indication: THYROID FUNCTION TEST ABNORMAL
  3. METROPOLOL TARTRATE [Concomitant]
     Indication: HYPERTENSION
  4. SERTRALINE [Concomitant]
     Indication: ANXIETY

REACTIONS (1)
  - Chromaturia [Unknown]
